FAERS Safety Report 15446395 (Version 1)
Quarter: 2018Q3

REPORT INFORMATION
  Report Type: Spontaneous
  Country: US (occurrence: US)
  Receive Date: 20180928
  Receipt Date: 20180928
  Transmission Date: 20181010
  Serious: No
  Sender: FDA-Public Use
  Company Number: US-AMGEN-USASP2018074722

PATIENT
  Age: 65 Year
  Sex: Female

DRUGS (2)
  1. PROLIA [Suspect]
     Active Substance: DENOSUMAB
     Indication: OSTEOPOROSIS POSTMENOPAUSAL
     Dosage: UNK
     Route: 065
     Dates: start: 20180425
  2. ROSUVASTATIN. [Concomitant]
     Active Substance: ROSUVASTATIN

REACTIONS (12)
  - Dysuria [Unknown]
  - Abdominal distension [Unknown]
  - Anxiety [Unknown]
  - Feeling hot [Not Recovered/Not Resolved]
  - Nasal dryness [Unknown]
  - Agitation [Unknown]
  - Tinnitus [Not Recovered/Not Resolved]
  - Hunger [Not Recovered/Not Resolved]
  - Menopausal symptoms [Unknown]
  - Eyelid oedema [Unknown]
  - Viral infection [Unknown]
  - Nasopharyngitis [Unknown]

NARRATIVE: CASE EVENT DATE: 2018
